FAERS Safety Report 8947665 (Version 1)
Quarter: 2012Q4

REPORT INFORMATION
  Report Type: 
  Country: FR (occurrence: FR)
  Receive Date: 20121205
  Receipt Date: 20121205
  Transmission Date: 20130627
  Serious: Yes (Hospitalization)
  Sender: FDA-Public Use
  Company Number: FR-ELI_LILLY_AND_COMPANY-FR201211007523

PATIENT
  Age: 66 Year
  Sex: Male

DRUGS (4)
  1. FORSTEO [Suspect]
     Indication: OSTEOPOROSIS
     Dosage: 20 ug, qd
     Route: 058
     Dates: start: 20110501, end: 20121015
  2. FLECAINE [Concomitant]
     Dosage: UNK, unknown
     Route: 065
  3. TRIATEC [Concomitant]
     Dosage: UNK, unknown
     Route: 065
  4. ALLOPURINOL [Concomitant]
     Dosage: UNK, unknown
     Route: 065

REACTIONS (1)
  - Cholelithiasis [Recovered/Resolved]
